FAERS Safety Report 11274165 (Version 1)
Quarter: 2015Q3

REPORT INFORMATION
  Report Type: Spontaneous
  Country: GB (occurrence: GB)
  Receive Date: 20150715
  Receipt Date: 20150715
  Transmission Date: 20151125
  Serious: Yes (Other)
  Sender: FDA-Public Use
  Company Number: GB-BAYER-2015-372329

PATIENT
  Age: 33 Year
  Sex: Female
  Weight: 53 kg

DRUGS (1)
  1. CLOTRIMAZOLE. [Suspect]
     Active Substance: CLOTRIMAZOLE
     Indication: VULVOVAGINAL CANDIDIASIS
     Dosage: 500 MG, UNK
     Route: 067
     Dates: start: 20150620

REACTIONS (3)
  - Blister [Recovering/Resolving]
  - Pain of skin [Recovering/Resolving]
  - Vulvovaginal erythema [Recovering/Resolving]

NARRATIVE: CASE EVENT DATE: 20150620
